FAERS Safety Report 16422199 (Version 7)
Quarter: 2020Q2

REPORT INFORMATION
  Report Type: Report from Study
  Country: US (occurrence: US)
  Receive Date: 20190612
  Receipt Date: 20200611
  Transmission Date: 20200713
  Serious: Yes (Hospitalization)
  Sender: FDA-Public Use
  Company Number: PHEH2019US024411

PATIENT
  Sex: Male
  Weight: 86.17 kg

DRUGS (6)
  1. TREPROSTINIL. [Suspect]
     Active Substance: TREPROSTINIL
     Dosage: 44 NG/KG/MIN, CONTINUOUS
     Route: 042
  2. TREPROSTINIL. [Suspect]
     Active Substance: TREPROSTINIL
     Dosage: 46 NG/KG/MIN, CONTINUOUS
     Route: 042
  3. TREPROSTINIL. [Suspect]
     Active Substance: TREPROSTINIL
     Indication: PULMONARY ARTERIAL HYPERTENSION
     Dosage: 22 NG/KG/MIN (5 MG/ML), CONTINUOUS
     Route: 042
     Dates: start: 20190610
  4. TREPROSTINIL. [Suspect]
     Active Substance: TREPROSTINIL
     Dosage: 56 NG/KG/MIN, CONTINUOUS
     Route: 042
  5. OPSUMIT [Concomitant]
     Active Substance: MACITENTAN
     Indication: PRODUCT USED FOR UNKNOWN INDICATION
     Dosage: UNK
     Route: 065
  6. REMODULIN [Concomitant]
     Active Substance: TREPROSTINIL
     Indication: PRODUCT USED FOR UNKNOWN INDICATION
     Dosage: 46 NG/KG/MIN
     Route: 065

REACTIONS (10)
  - Diarrhoea [Unknown]
  - Pain in jaw [Unknown]
  - Dizziness [Unknown]
  - Dyspnoea [Unknown]
  - Nausea [Recovering/Resolving]
  - Pain in extremity [Not Recovered/Not Resolved]
  - Headache [Recovering/Resolving]
  - Musculoskeletal pain [Unknown]
  - Flushing [Unknown]
  - Asthenia [Unknown]
